FAERS Safety Report 15549652 (Version 1)
Quarter: 2018Q4

REPORT INFORMATION
  Report Type: Spontaneous
  Country: US (occurrence: US)
  Receive Date: 20181024
  Receipt Date: 20181024
  Transmission Date: 20190205
  Serious: No
  Sender: FDA-Public Use
  Company Number: None

PATIENT
  Age: 34 Year
  Sex: Female
  Weight: 74.25 kg

DRUGS (1)
  1. AIMOVIG [Suspect]
     Active Substance: ERENUMAB-AOOE
     Indication: MIGRAINE
     Dosage: ?          QUANTITY:1 INJECTION(S);OTHER FREQUENCY:ONCE A MONTH;OTHER ROUTE:INJECTED INTO SKIN?
     Dates: start: 20180627, end: 20180627

REACTIONS (8)
  - Dehydration [None]
  - Discomfort [None]
  - Diverticulitis [None]
  - Dyspepsia [None]
  - Gastric disorder [None]
  - Nausea [None]
  - Abdominal pain upper [None]
  - Constipation [None]
